FAERS Safety Report 5791178-6 (Version None)
Quarter: 2008Q2

REPORT INFORMATION
  Report Type: 
  Country: None (occurrence: None)
  Receive Date: 20080626
  Receipt Date: 20080228
  Transmission Date: 20081010
  Serious: No
  Sender: FDA-Public Use
  Company Number: A0712358A

PATIENT

DRUGS (1)
  1. ALLI [Suspect]
     Dates: start: 20080205

REACTIONS (7)
  - DISCOMFORT [None]
  - GASTROINTESTINAL DISORDER [None]
  - PRURITUS [None]
  - RASH ERYTHEMATOUS [None]
  - RASH MACULAR [None]
  - RASH PRURITIC [None]
  - THERAPEUTIC RESPONSE UNEXPECTED [None]
